FAERS Safety Report 8018071-2 (Version None)
Quarter: 2012Q1

REPORT INFORMATION
  Report Type: 
  Country: None (occurrence: None)
  Receive Date: 20120103
  Receipt Date: 20111227
  Transmission Date: 20120608
  Serious: Yes (Death)
  Sender: FDA-Public Use
  Company Number: JP-CELGENEUS-087-50794-11123598

PATIENT
  Sex: Male
  Weight: 52 kg

DRUGS (12)
  1. CINAL [Concomitant]
     Route: 065
  2. FLIVAS [Concomitant]
     Route: 065
  3. VIDAZA [Suspect]
     Indication: MYELODYSPLASTIC SYNDROME
     Dosage: 37.5 MILLIGRAM/SQ. METER
     Route: 065
     Dates: start: 20110530, end: 20110605
  4. SINGULAIR [Concomitant]
     Route: 065
  5. LANSOPRAZOLE [Concomitant]
     Route: 065
  6. DILTIAZEM HCL [Concomitant]
     Route: 065
  7. MUCOSIL-10 [Concomitant]
     Route: 065
  8. PYDOXAL [Concomitant]
     Route: 065
  9. MIYA BM [Concomitant]
     Route: 065
  10. ALLOPURINOL [Concomitant]
     Route: 065
  11. UNIPHYL LA [Concomitant]
     Route: 065
  12. DUTASTERIDE [Concomitant]
     Route: 065

REACTIONS (1)
  - ACUTE MYOCARDIAL INFARCTION [None]
